FAERS Safety Report 6390564-3 (Version None)
Quarter: 2009Q4

REPORT INFORMATION
  Report Type: 
  Country: None (occurrence: None)
  Receive Date: 20091005
  Receipt Date: 20091005
  Transmission Date: 20100525
  Serious: Yes (Life-Threatening, Other)
  Sender: FDA-Public Use
  Company Number: None

PATIENT
  Age: 27 Year
  Sex: Female
  Weight: 31.2982 kg

DRUGS (1)
  1. KEPPRA [Suspect]

REACTIONS (4)
  - CONDITION AGGRAVATED [None]
  - CONVULSION [None]
  - URTICARIA [None]
  - WEIGHT DECREASED [None]
